FAERS Safety Report 9729463 (Version 2)
Quarter: 2015Q3

REPORT INFORMATION
  Report Type: Spontaneous
  Country: US (occurrence: US)
  Receive Date: 20131204
  Receipt Date: 20150804
  Transmission Date: 20151125
  Serious: No
  Sender: FDA-Public Use
  Company Number: US-GILEAD-2009-0021543

PATIENT
  Age: 51 Year
  Sex: Female
  Weight: 108.86 kg

DRUGS (14)
  1. VITAMIN C [Concomitant]
     Active Substance: ASCORBIC ACID
  2. LETAIRIS [Suspect]
     Active Substance: AMBRISENTAN
     Indication: PULMONARY ARTERIAL HYPERTENSION
     Route: 048
     Dates: start: 20090227
  3. ASPIRIN. [Concomitant]
     Active Substance: ASPIRIN
  4. VITAMIN D [Concomitant]
     Active Substance: CHOLECALCIFEROL
  5. POTASSIUM CHLORIDE. [Concomitant]
     Active Substance: POTASSIUM CHLORIDE
  6. CRESTOR [Concomitant]
     Active Substance: ROSUVASTATIN CALCIUM
  7. COUMADIN [Concomitant]
     Active Substance: WARFARIN SODIUM
  8. CALCIUM [Concomitant]
     Active Substance: CALCIUM
  9. PLAVIX [Concomitant]
     Active Substance: CLOPIDOGREL BISULFATE
  10. LASIX [Concomitant]
     Active Substance: FUROSEMIDE
  11. MULTIVITAMIN [Concomitant]
     Active Substance: VITAMINS
  12. REVATIO [Concomitant]
     Active Substance: SILDENAFIL CITRATE
  13. RANITIDINE [Concomitant]
     Active Substance: RANITIDINE\RANITIDINE HYDROCHLORIDE
  14. ACETAMINOPHEN. [Concomitant]
     Active Substance: ACETAMINOPHEN

REACTIONS (1)
  - Fluid retention [Unknown]
